FAERS Safety Report 6959634-2 (Version None)
Quarter: 2010Q3

REPORT INFORMATION
  Report Type: 
  Country: None (occurrence: None)
  Receive Date: 20100827
  Receipt Date: 20100811
  Transmission Date: 20110219
  Serious: Yes (Life-Threatening)
  Sender: FDA-Public Use
  Company Number: 201007AGG00943

PATIENT
  Age: 88 Year
  Sex: Male
  Weight: 70 kg

DRUGS (7)
  1. TIROFIBAN HYDROCHLORIDE (AGGRASTAT (TIROFIBAN HYDROCHLORIDE) [Suspect]
     Indication: ACUTE MYOCARDIAL INFARCTION
     Dosage: (6ML/H INTRAVENOUS (NOT OTHERWISE SPECIFIED))
     Route: 042
     Dates: start: 20100718, end: 20100718
  2. ISCOVER [Concomitant]
  3. ASPIRIN [Concomitant]
  4. HEPARIN [Concomitant]
  5. RAMIPRIL [Concomitant]
  6. BISOPROLOL FUMARATE [Concomitant]
  7. SIMVASTATIN [Concomitant]

REACTIONS (4)
  - HAEMORRHAGE [None]
  - PYREXIA [None]
  - SHOCK HAEMORRHAGIC [None]
  - THROMBOCYTOPENIA [None]
